FAERS Safety Report 16956605 (Version 1)
Quarter: 2019Q4

REPORT INFORMATION
  Report Type: Spontaneous
  Country: US (occurrence: US)
  Receive Date: 20190905
  Receipt Date: 20190905
  Transmission Date: 20200122
  Serious: No
  Sender: FDA-Public Use
  Company Number: None

PATIENT
  Age: 58 Year
  Sex: Female

DRUGS (4)
  1. IBRANCE [Suspect]
     Active Substance: PALBOCICLIB
     Indication: BREAST CANCER
     Route: 048
     Dates: start: 20190626
  2. LORAZEPAM. [Concomitant]
     Active Substance: LORAZEPAM
  3. VITAMIN C [Concomitant]
     Active Substance: ASCORBIC ACID
  4. GINGER. [Concomitant]
     Active Substance: GINGER

REACTIONS (3)
  - Malignant neoplasm progression [None]
  - White blood cell count decreased [None]
  - Self-medication [None]

NARRATIVE: CASE EVENT DATE: 20190905
